FAERS Safety Report 13366285 (Version 1)
Quarter: 2017Q1

REPORT INFORMATION
  Report Type: Spontaneous
  Country: US (occurrence: US)
  Receive Date: 20170323
  Receipt Date: 20170323
  Transmission Date: 20170429
  Serious: No
  Sender: FDA-Public Use
  Company Number: US-009507513-1703USA003829

PATIENT
  Sex: Female

DRUGS (1)
  1. NEXPLANON [Suspect]
     Active Substance: ETONOGESTREL
     Dosage: 1 DF, UNK
     Route: 059

REACTIONS (4)
  - Contusion [Unknown]
  - Implant site hypoaesthesia [Unknown]
  - Hypoaesthesia [Unknown]
  - Oedema [Unknown]

NARRATIVE: CASE EVENT DATE: 2017
